FAERS Safety Report 5114220-4 (Version None)
Quarter: 2006Q3

REPORT INFORMATION
  Report Type: 
  Country: None (occurrence: None)
  Receive Date: 20060925
  Receipt Date: 20060919
  Transmission Date: 20061208
  Serious: Yes (Hospitalization)
  Sender: FDA-Public Use
  Company Number: GB-ROXANE LABORATORIES, INC-2006-BP-10999RO

PATIENT
  Age: 66 Year
  Sex: Male

DRUGS (1)
  1. DICLOFENAC [Suspect]
     Indication: BACK PAIN
     Route: 048

REACTIONS (7)
  - ANOREXIA [None]
  - ECTHYMA [None]
  - GANGRENE [None]
  - LETHARGY [None]
  - MALAISE [None]
  - NEUTROPENIA [None]
  - PSEUDOMONAS INFECTION [None]
